FAERS Safety Report 8830089 (Version 1)
Quarter: 2012Q4

REPORT INFORMATION
  Report Type: Spontaneous
  Country: US (occurrence: None)
  Receive Date: 20121005
  Receipt Date: 20121005
  Transmission Date: 20130627
  Serious: Yes (Other)
  Sender: FDA-Public Use
  Company Number: None

PATIENT
  Sex: Male
  Weight: 79.38 kg

DRUGS (1)
  1. FLUOXETINE [Suspect]
     Route: 048
     Dates: start: 201103, end: 201109

REACTIONS (2)
  - Depression [None]
  - Disease recurrence [None]
